FAERS Safety Report 15770126 (Version 3)
Quarter: 2019Q1

REPORT INFORMATION
  Report Type: Spontaneous
  Country: US (occurrence: US)
  Receive Date: 20181228
  Receipt Date: 20190128
  Transmission Date: 20190417
  Serious: No
  Sender: FDA-Public Use
  Company Number: US-PFIZER INC-2018531118

PATIENT
  Age: 80 Year
  Sex: Female
  Weight: 56.69 kg

DRUGS (1)
  1. ALDACTONE [Suspect]
     Active Substance: SPIRONOLACTONE
     Indication: STIFF PERSON SYNDROME
     Dosage: UNK, DAILY (BETWEEN 12.5 AND 25MG)

REACTIONS (6)
  - Scoliosis [Unknown]
  - Therapeutic response unexpected [Unknown]
  - Constipation [Unknown]
  - Product use in unapproved indication [Unknown]
  - Hair growth abnormal [Unknown]
  - Pain [Unknown]
